FAERS Safety Report 16873516 (Version 1)
Quarter: 2019Q4

REPORT INFORMATION
  Report Type: Report from Study
  Country: ES (occurrence: ES)
  Receive Date: 20191001
  Receipt Date: 20191001
  Transmission Date: 20200122
  Serious: Yes (Other)
  Sender: FDA-Public Use
  Company Number: ES-MYLANLABS-2019M1091228

PATIENT
  Age: 74 Year
  Sex: Female

DRUGS (28)
  1. FENTANYL. [Suspect]
     Active Substance: FENTANYL
     Dosage: 50
     Route: 062
     Dates: start: 2017
  2. FENTANYL. [Suspect]
     Active Substance: FENTANYL
     Dosage: 1-2 RESUCES PER DAY
     Route: 060
     Dates: start: 2019
  3. MORPHINE [Suspect]
     Active Substance: MORPHINE
     Indication: ANALGESIC THERAPY
     Dosage: UNKNOWN
     Route: 042
     Dates: start: 2016
  4. MORPHINE [Suspect]
     Active Substance: MORPHINE
     Indication: ANALGESIC THERAPY
     Dosage: 180 MG IN 24 HOURS
     Route: 065
     Dates: start: 2019
  5. DEXKETOPROFEN [Concomitant]
     Active Substance: DEXKETOPROFEN
     Indication: ANALGESIC THERAPY
     Dosage: 25 MG, Q8H
     Route: 065
     Dates: start: 2014
  6. DEXAMETHASONE. [Concomitant]
     Active Substance: DEXAMETHASONE
     Indication: PRODUCT USED FOR UNKNOWN INDICATION
     Dosage: UNKNOWN
     Route: 065
  7. IRINOTECAN [Concomitant]
     Active Substance: IRINOTECAN
     Indication: RECTAL ADENOCARCINOMA
     Dosage: UNKNOWN, 1X/2 WEEKS (DOSE 1)
     Route: 065
  8. DULOXETINE. [Concomitant]
     Active Substance: DULOXETINE
     Indication: ANALGESIC THERAPY
     Dosage: 60 MG EVERY 12 HOURS
     Route: 065
     Dates: start: 2018
  9. FENTANYL. [Suspect]
     Active Substance: FENTANYL
     Dosage: 100
     Route: 062
     Dates: start: 201705
  10. FENTANYL. [Suspect]
     Active Substance: FENTANYL
     Dosage: 125
     Route: 062
     Dates: start: 201901
  11. IRINOTECAN [Concomitant]
     Active Substance: IRINOTECAN
     Dosage: DOSE REDUCTION UP TO 60 PERCENT
     Route: 065
     Dates: end: 201701
  12. FENTANYL. [Suspect]
     Active Substance: FENTANYL
     Indication: ANALGESIC THERAPY
     Dosage: 50
     Route: 062
     Dates: start: 2016
  13. 5-FLUOROURACIL                     /00098801/ [Concomitant]
     Active Substance: FLUOROURACIL
     Dosage: FORENIGHTLY
     Route: 065
     Dates: start: 2018
  14. LEUCOVORIN                         /00566701/ [Concomitant]
     Active Substance: LEUCOVORIN
     Dosage: UNK
     Route: 065
  15. FENTANYL. [Suspect]
     Active Substance: FENTANYL
     Indication: BREAKTHROUGH PAIN
     Dosage: 6 RESCUES DAILY
     Route: 060
     Dates: start: 2016
  16. MORPHINE [Suspect]
     Active Substance: MORPHINE
     Dosage: 5 MILLIGRAM
     Route: 058
     Dates: start: 2016
  17. LIDOCAINE. [Concomitant]
     Active Substance: LIDOCAINE
     Indication: ANALGESIC THERAPY
     Dosage: UNKNOWN
     Route: 065
     Dates: start: 2018
  18. LEUCOVORIN                         /00566701/ [Concomitant]
     Active Substance: LEUCOVORIN
     Indication: RECTAL ADENOCARCINOMA
     Dosage: FORENIGHTLY (1 DOSE)
     Route: 065
     Dates: start: 2018
  19. METAMIZOLE [Concomitant]
     Active Substance: METAMIZOLE
     Indication: ANALGESIC THERAPY
     Dosage: 575 MG, Q8H
     Route: 065
     Dates: start: 2014
  20. FENTANYL. [Suspect]
     Active Substance: FENTANYL
     Dosage: REDUCING DOSE UP TO A DOSE OF 50
     Route: 062
     Dates: start: 2017
  21. FENTANYL. [Suspect]
     Active Substance: FENTANYL
     Dosage: 100
     Route: 062
  22. 5-FLUOROURACIL                     /00098801/ [Concomitant]
     Active Substance: FLUOROURACIL
     Indication: RECTAL ADENOCARCINOMA
     Dosage: UNKNOWN
     Route: 065
  23. PREGABALIN. [Concomitant]
     Active Substance: PREGABALIN
     Indication: ANALGESIC THERAPY
     Dosage: 75 MG, Q12H
     Route: 065
  24. FENTANYL. [Suspect]
     Active Substance: FENTANYL
     Dosage: 125
     Route: 062
     Dates: start: 2018
  25. FENTANYL. [Suspect]
     Active Substance: FENTANYL
     Dosage: 5 RESCUES DAILY
     Route: 060
     Dates: start: 201705
  26. FENTANYL. [Suspect]
     Active Substance: FENTANYL
     Dosage: 75
     Route: 062
     Dates: start: 2018
  27. FENTANYL. [Suspect]
     Active Substance: FENTANYL
     Dosage: 100 MICROGRAM
     Route: 060
     Dates: start: 2016
  28. FENTANYL. [Suspect]
     Active Substance: FENTANYL
     Dosage: SINGLE DAILY RESCUE PER EPISODE OF INCIDENTAL VOLITIONAL IOD
     Route: 060
     Dates: start: 2019

REACTIONS (5)
  - Myoclonus [Unknown]
  - Nausea [Unknown]
  - Dry mouth [Unknown]
  - Hallucination [Unknown]
  - Somnolence [Unknown]

NARRATIVE: CASE EVENT DATE: 201705
